FAERS Safety Report 8920422 (Version 2)
Quarter: 2012Q4

REPORT INFORMATION
  Report Type: 
  Country: US (occurrence: US)
  Receive Date: 20121122
  Receipt Date: 20121217
  Transmission Date: 20130627
  Serious: Yes (Hospitalization, Other)
  Sender: FDA-Public Use
  Company Number: US-PFIZER INC-2012285813

PATIENT
  Age: 78 Year
  Sex: Female

DRUGS (13)
  1. GLUCOTROL XL [Suspect]
     Indication: DIABETES MELLITUS
     Dosage: 2.5 mg, 1x/day
     Route: 048
     Dates: start: 200906
  2. FOLIC ACID [Concomitant]
     Dosage: 1 mg, 1x/day (qd)
  3. REMICADE [Concomitant]
     Dosage: UNK, (6-8 wks)
  4. PREDNISONE [Concomitant]
     Dosage: 2.5 mg, 1x/day (qd)
  5. METHOTREXATE [Concomitant]
     Dosage: 2.5 mg, UNK (2.5 mg x 4 a mondys)
  6. ASA [Concomitant]
     Dosage: 81 mg, 1x/day (qd)
  7. GLIPIZIDE (ER) [Concomitant]
     Dosage: 2.5 UNK, 1x/day (qd)
  8. LESCOL [Concomitant]
     Dosage: 40 UNK, 2x/day (BID)
  9. FIORICET [Concomitant]
     Dosage: UNK, 4x/day (QID)
  10. ATENOLOL [Concomitant]
     Dosage: 100 mg, 1x/day (qd)
  11. DIOVAN [Concomitant]
     Dosage: 80 UNK, 1x/day (qd)
  12. NITROGLYCERIN [Concomitant]
     Dosage: UNK, as needed (PRN)
  13. ISOSORBIDE MONONITRATE [Concomitant]
     Dosage: 60 UNK, 1x/day (QD)

REACTIONS (1)
  - Acute myocardial infarction [Unknown]
